FAERS Safety Report 8405736-3 (Version None)
Quarter: 2012Q2

REPORT INFORMATION
  Report Type: 
  Country: None (occurrence: None)
  Receive Date: 20120530
  Receipt Date: 20120530
  Transmission Date: 20120825
  Serious: Yes (Other)
  Sender: FDA-Public Use
  Company Number: None

PATIENT
  Age: 50 Year
  Sex: Female
  Weight: 72.5755 kg

DRUGS (1)
  1. AVONEX [Suspect]
     Dosage: 30MCG QW IM
     Route: 030
     Dates: start: 20120403, end: 20120524

REACTIONS (1)
  - URTICARIA [None]
